FAERS Safety Report 8738879 (Version 3)
Quarter: 2013Q3

REPORT INFORMATION
  Report Type: Report from Study
  Country: JP (occurrence: JP)
  Receive Date: 20120823
  Receipt Date: 20130724
  Transmission Date: 20140515
  Serious: Yes (Other)
  Sender: FDA-Public Use
  Company Number: JP-VERTEX PHARMACEUTICAL INC.-2012-019676

PATIENT
  Age: 64 Year
  Sex: Male

DRUGS (15)
  1. VX-950 (TELAPREVIR) [Suspect]
     Indication: CHRONIC HEPATITIS C
     Dosage: 2250 MG, QD
     Route: 048
     Dates: start: 20120508, end: 20120731
  2. RIBAVIRIN [Suspect]
     Indication: HEPATITIS C
     Dosage: 800 MG, QD
     Route: 048
     Dates: start: 20120508, end: 20120730
  3. RIBAVIRIN [Suspect]
     Dosage: 400 MG, QD
     Dates: start: 20120731, end: 20121023
  4. PEGINTERFERON ALFA-2B [Concomitant]
     Dosage: 1.5 ?G/KG, UNK
     Route: 058
     Dates: start: 20120508, end: 20121023
  5. URSO [Concomitant]
     Dosage: 600 MG, QD
     Route: 048
  6. NEXIUM [Concomitant]
     Dosage: 20 MG, QD
     Route: 048
     Dates: start: 20120508, end: 20121023
  7. VOLTAREN [Concomitant]
     Dosage: 25 MG, QD/PRN
     Route: 054
     Dates: start: 20120508, end: 20121023
  8. HIRUDOID [Concomitant]
     Dosage: UNK, QD
     Route: 061
     Dates: start: 20120512, end: 20120512
  9. LIVACT [Concomitant]
     Dosage: 3 PACK
     Route: 048
  10. PROMAC [Concomitant]
     Dosage: 225 MG, QD
     Route: 048
  11. AZUNOL [Concomitant]
     Dosage: UNK, QD
     Route: 061
     Dates: start: 20120702, end: 20121023
  12. ALMETA [Concomitant]
     Dosage: UNK, QD
     Route: 061
     Dates: start: 20120702, end: 20121023
  13. BIO-THREE [Concomitant]
     Dosage: 6 DF, QD
     Route: 048
     Dates: start: 20120910, end: 20121030
  14. EPADEL-S [Concomitant]
     Dosage: 3 DF, QD
     Route: 048
  15. TALION [Concomitant]
     Dosage: 20 MG, QD
     Route: 048
     Dates: start: 20120508, end: 20121023

REACTIONS (2)
  - Rash [Not Recovered/Not Resolved]
  - Anaemia [Recovered/Resolved]
